FAERS Safety Report 17599358 (Version 1)
Quarter: 2020Q1

REPORT INFORMATION
  Report Type: Report from Study
  Country: RO (occurrence: RO)
  Receive Date: 20200330
  Receipt Date: 20200330
  Transmission Date: 20200409
  Serious: Yes (Other)
  Sender: FDA-Public Use
  Company Number: RO-MYLANLABS-2020M1031782

PATIENT
  Age: 27 Year
  Sex: Female

DRUGS (1)
  1. EMTRICITABINE/TENOFOVIR DISOPROXIL FUMARATE [Suspect]
     Active Substance: EMTRICITABINE\TENOFOVIR DISOPROXIL FUMARATE
     Indication: HIV INFECTION
     Dosage: UNK (200/245MG)
     Route: 065

REACTIONS (5)
  - Unevaluable event [Unknown]
  - CD4 lymphocytes abnormal [Unknown]
  - Treatment noncompliance [Unknown]
  - Virologic failure [Unknown]
  - Gastrointestinal disorder [Unknown]
